FAERS Safety Report 21341332 (Version 1)
Quarter: 2022Q3

REPORT INFORMATION
  Report Type: Spontaneous
  Country: GB (occurrence: GB)
  Receive Date: 20220916
  Receipt Date: 20220916
  Transmission Date: 20221026
  Serious: Yes (Life-Threatening, Other)
  Sender: FDA-Public Use
  Company Number: GB-MHRA-ADR 27268758

PATIENT
  Age: 39 Year
  Sex: Female
  Weight: 92 kg

DRUGS (3)
  1. IBUPROFEN [Suspect]
     Active Substance: IBUPROFEN
     Indication: Ill-defined disorder
     Route: 065
     Dates: start: 20220905
  2. BETAMETHASONE VALERATE [Concomitant]
     Active Substance: BETAMETHASONE VALERATE
     Indication: Ill-defined disorder
     Dosage: MODERATE POTENCY STEROID CREAM - APPLY TWICE DA...
     Dates: start: 20220620, end: 20220718
  3. FEXOFENADINE [Concomitant]
     Active Substance: FEXOFENADINE HYDROCHLORIDE
     Indication: Ill-defined disorder
     Dosage: TAKE ONE TABLET ONCE DAILY.
     Dates: start: 20220804, end: 20220903

REACTIONS (1)
  - Multiple allergies [Recovered/Resolved]

NARRATIVE: CASE EVENT DATE: 20220905
